FAERS Safety Report 8902061 (Version 1)
Quarter: 2012Q4

REPORT INFORMATION
  Report Type: Report from Study
  Country: US (occurrence: US)
  Receive Date: 20121112
  Receipt Date: 20121112
  Transmission Date: 20130627
  Serious: Yes (Hospitalization)
  Sender: FDA-Public Use
  Company Number: US-ROCHE-CID000000002221935

PATIENT
  Age: 54 Year
  Sex: Male
  Weight: 101.7 kg

DRUGS (5)
  1. BEVACIZUMAB [Suspect]
     Indication: COLORECTAL CANCER METASTATIC
     Route: 042
     Dates: start: 20120420, end: 20120725
  2. BEVACIZUMAB [Suspect]
     Route: 042
     Dates: start: 20121024
  3. CAPECITABINE [Suspect]
     Indication: COLORECTAL CANCER METASTATIC
     Route: 048
     Dates: start: 20120420, end: 20120725
  4. OXALIPLATIN [Suspect]
     Indication: COLORECTAL CANCER METASTATIC
     Route: 042
     Dates: start: 20120420, end: 20120725
  5. 5-FU [Concomitant]
     Indication: COLORECTAL CANCER METASTATIC
     Route: 042
     Dates: start: 20120823

REACTIONS (3)
  - Abdominal pain [Recovered/Resolved]
  - Colonic obstruction [Recovered/Resolved]
  - Tooth fracture [Not Recovered/Not Resolved]
